FAERS Safety Report 7648249-9 (Version None)
Quarter: 2011Q3

REPORT INFORMATION
  Report Type: 
  Country: None (occurrence: None)
  Receive Date: 20110801
  Receipt Date: 20110727
  Transmission Date: 20111222
  Serious: No
  Sender: FDA-Public Use
  Company Number: US-PFIZER INC-2011171183

PATIENT
  Sex: Male
  Weight: 70.295 kg

DRUGS (1)
  1. ZOLOFT [Suspect]
     Dosage: 100 MG, UNK

REACTIONS (1)
  - WITHDRAWAL SYNDROME [None]
